FAERS Safety Report 9903585 (Version 2)
Quarter: 2014Q1

REPORT INFORMATION
  Report Type: Report from Study
  Country: US (occurrence: US)
  Receive Date: 20140217
  Receipt Date: 20140217
  Transmission Date: 20141002
  Serious: Yes (Other)
  Sender: FDA-Public Use
  Company Number: US-ABBVIE-13P-163-1177954-00

PATIENT
  Age: 61 Year
  Sex: Male
  Weight: 95.34 kg

DRUGS (20)
  1. HUMIRA [Suspect]
     Indication: ANKYLOSING SPONDYLITIS
     Dates: start: 201305, end: 201305
  2. HUMIRA [Suspect]
     Indication: CROHN^S DISEASE
     Dosage: TWO WEEKS AFTER 160MG DOSE, ONE DOSE
     Dates: start: 2013, end: 2013
  3. HUMIRA [Suspect]
     Dosage: FOUR WEEKS AFTER 160MG DOSE
     Dates: start: 2013
  4. TOPAMAX [Concomitant]
     Indication: GRAND MAL CONVULSION
     Dosage: 2 IN MORNING AND 2 IN EVENING
  5. TOPAMAX [Concomitant]
     Indication: PETIT MAL EPILEPSY
  6. COUMADIN [Concomitant]
     Indication: DEEP VEIN THROMBOSIS
  7. ALTACE [Concomitant]
     Indication: HYPERTENSION
  8. PREDNISONE [Concomitant]
     Indication: ANKYLOSING SPONDYLITIS
  9. XANAX [Concomitant]
     Indication: ANXIETY
  10. GENERIC ELAVIL [Concomitant]
     Indication: DEPRESSION
     Dosage: AT NIGHT AS NEEDED
  11. SINEMET [Concomitant]
     Indication: RESTLESS LEGS SYNDROME
     Dosage: AT NIGHT AS NEEDED
  12. HYDROCODONE [Concomitant]
     Indication: FIBROMYALGIA
  13. HYDROCODONE [Concomitant]
     Indication: ANKYLOSING SPONDYLITIS
  14. AMITRIPTYLINE [Concomitant]
     Indication: INSOMNIA
  15. AMITRIPTYLINE [Concomitant]
     Indication: DEPRESSION
  16. AMITRIPTYLINE [Concomitant]
     Indication: ANXIETY
  17. VITAMIN B12 [Concomitant]
     Indication: PERNICIOUS ANAEMIA
  18. TESTOSTERONE [Concomitant]
     Indication: BLOOD TESTOSTERONE DECREASED
  19. TESTOSTERONE [Concomitant]
     Indication: FATIGUE
  20. VITAMIN D NOS [Concomitant]
     Indication: VITAMIN SUPPLEMENTATION

REACTIONS (11)
  - Renal mass [Not Recovered/Not Resolved]
  - Renal cancer [Not Recovered/Not Resolved]
  - Faecal incontinence [Not Recovered/Not Resolved]
  - Crohn^s disease [Recovering/Resolving]
  - Haematochezia [Recovering/Resolving]
  - Large intestinal stenosis [Unknown]
  - Gastrointestinal tract irritation [Unknown]
  - Abdominal pain [Unknown]
  - Gastrointestinal tract irritation [Unknown]
  - Respiratory tract congestion [Not Recovered/Not Resolved]
  - Increased upper airway secretion [Not Recovered/Not Resolved]
